FAERS Safety Report 7649682-1 (Version None)
Quarter: 2011Q3

REPORT INFORMATION
  Report Type: 
  Country: None (occurrence: None)
  Receive Date: 20110802
  Receipt Date: 20110725
  Transmission Date: 20111222
  Serious: No
  Sender: FDA-Public Use
  Company Number: US-PFIZER INC-2011168620

PATIENT
  Sex: Male
  Weight: 29.932 kg

DRUGS (1)
  1. GENOTROPIN [Suspect]
     Indication: BODY HEIGHT BELOW NORMAL
     Dosage: 1.2 MG, 1X/DAY (INJECT 1.2 MG SUBCUTANEOUSLY DAILY)
     Route: 058
     Dates: start: 20100818

REACTIONS (1)
  - JAW DISORDER [None]
